FAERS Safety Report 10498654 (Version 1)
Quarter: 2014Q4

REPORT INFORMATION
  Report Type: Report from Study
  Country: CA (occurrence: CA)
  Receive Date: 20141006
  Receipt Date: 20141006
  Transmission Date: 20150528
  Serious: Yes (Death, Other)
  Sender: FDA-Public Use
  Company Number: CA-GILEAD-2014-0117005

PATIENT
  Age: 74 Year
  Sex: Male

DRUGS (2)
  1. SIMEPREVIR [Concomitant]
     Active Substance: SIMEPREVIR
  2. SOFOSBUVIR [Suspect]
     Active Substance: SOFOSBUVIR
     Indication: HEPATITIS C
     Dosage: 400 MG, UNK
     Route: 065
     Dates: start: 20140513

REACTIONS (1)
  - Death [Fatal]

NARRATIVE: CASE EVENT DATE: 20140702
